FAERS Safety Report 24964886 (Version 1)
Quarter: 2025Q1

REPORT INFORMATION
  Report Type: Spontaneous
  Country: US (occurrence: US)
  Receive Date: 20250213
  Receipt Date: 20250213
  Transmission Date: 20250408
  Serious: Yes (Life-Threatening, Hospitalization)
  Sender: ACCORD
  Company Number: US-Accord-469730

PATIENT
  Age: 57 Year
  Sex: Male

DRUGS (1)
  1. CISATRACURIUM BESYLATE [Suspect]
     Active Substance: CISATRACURIUM BESYLATE
     Indication: Hypoxia

REACTIONS (2)
  - Hyperthermia malignant [Recovering/Resolving]
  - Off label use [Unknown]
